FAERS Safety Report 26014961 (Version 1)
Quarter: 2025Q4

REPORT INFORMATION
  Report Type: Spontaneous
  Country: US (occurrence: US)
  Receive Date: 20251109
  Receipt Date: 20251109
  Transmission Date: 20260118
  Serious: No
  Sender: SANOFI AVENTIS
  Company Number: US-SA-2025SA328472

PATIENT
  Sex: Female

DRUGS (1)
  1. DUPIXENT [Suspect]
     Active Substance: DUPILUMAB
     Indication: Dermatitis atopic

REACTIONS (4)
  - Conjunctivitis [Recovering/Resolving]
  - Eyelid margin crusting [Recovering/Resolving]
  - Lacrimation increased [Recovering/Resolving]
  - Night blindness [Recovering/Resolving]
